FAERS Safety Report 23061941 (Version 1)
Quarter: 2023Q4

REPORT INFORMATION
  Report Type: Spontaneous
  Country: US (occurrence: None)
  Receive Date: 20231013
  Receipt Date: 20231013
  Transmission Date: 20240110
  Serious: No
  Sender: FDA-Public Use
  Company Number: 2023A230809

PATIENT
  Sex: Female

DRUGS (1)
  1. TEZSPIRE [Suspect]
     Active Substance: TEZEPELUMAB-EKKO
     Dosage: UNKNOWN

REACTIONS (9)
  - Ocular discomfort [Unknown]
  - Back pain [Unknown]
  - Hyperhidrosis [Unknown]
  - Weight increased [Unknown]
  - Rash [Unknown]
  - Burning sensation [Unknown]
  - Bone pain [Unknown]
  - Myalgia [Unknown]
  - Feeling abnormal [Unknown]
